FAERS Safety Report 9976061 (Version 1)
Quarter: 2014Q1

REPORT INFORMATION
  Report Type: Spontaneous
  Country: FR (occurrence: FR)
  Receive Date: 20140306
  Receipt Date: 20140306
  Transmission Date: 20141002
  Serious: Yes (Hospitalization, Other)
  Sender: FDA-Public Use
  Company Number: FR-ABBVIE-14P-056-1209887-00

PATIENT
  Age: 78 Year
  Sex: Female

DRUGS (7)
  1. ZECLAR 500 MG [Suspect]
     Indication: LUNG INFECTION
     Route: 048
     Dates: start: 20140127, end: 20140208
  2. COUMADINE [Interacting]
     Indication: ATRIAL FIBRILLATION
     Route: 048
     Dates: end: 20140203
  3. COUMADINE [Interacting]
     Dates: start: 20140205
  4. AVLOCARDYL [Concomitant]
     Indication: HYPERTENSION
     Route: 048
  5. LASILIX [Concomitant]
     Indication: HYPERTENSION
     Route: 048
  6. LERCAN [Concomitant]
     Indication: HYPERTENSION
     Dosage: 0.5 DOSAGE FORM DAILY; 5 MG DAILY
     Route: 048
  7. LEVOTHYROX [Concomitant]
     Indication: PRODUCT USED FOR UNKNOWN INDICATION
     Route: 048

REACTIONS (10)
  - Muscle haemorrhage [Recovering/Resolving]
  - Abdominal wall haematoma [Recovering/Resolving]
  - International normalised ratio increased [Recovered/Resolved]
  - Drug interaction [Unknown]
  - Cardiac failure [Unknown]
  - Abdominal pain [Unknown]
  - Rales [Unknown]
  - Bronchitis [Unknown]
  - Blood pressure decreased [Unknown]
  - Overdose [Unknown]
